FAERS Safety Report 8201641-6 (Version None)
Quarter: 2012Q1

REPORT INFORMATION
  Report Type: 
  Country: None (occurrence: None)
  Receive Date: 20120312
  Receipt Date: 20120306
  Transmission Date: 20120608
  Serious: Yes (Death)
  Sender: FDA-Public Use
  Company Number: US-CELGENEUS-163-21880-12030761

PATIENT
  Sex: Male

DRUGS (12)
  1. GABAPENTIN [Concomitant]
     Dosage: 100 MILLIGRAM
     Route: 065
  2. REVLIMID [Suspect]
     Dosage: 10 MILLIGRAM
     Route: 048
     Dates: start: 20120204
  3. ZOLOFT [Concomitant]
     Dosage: 25 MILLIGRAM
     Route: 065
  4. SOTALOL HCL [Concomitant]
     Dosage: 80 MILLIGRAM
     Route: 065
  5. DOXAZOSIN MESYLATE [Concomitant]
     Dosage: 2 MILLIGRAM
     Route: 065
  6. WARFARIN SODIUM [Concomitant]
     Dosage: 1 MILLIGRAM
     Route: 065
  7. REVLIMID [Suspect]
     Indication: MULTIPLE MYELOMA
     Dosage: 10 MILLIGRAM
     Route: 048
     Dates: start: 20090801
  8. ASPIRIN [Concomitant]
     Dosage: 81 MILLIGRAM
     Route: 065
  9. CARBIDOPA AND LEVODOPA [Concomitant]
     Dosage: 10 - 100 MG
     Route: 065
  10. HYPOTEARS DDPF [Concomitant]
     Route: 065
  11. TYLENOL PM [Concomitant]
     Route: 065
  12. SIMVASTATIN [Concomitant]
     Dosage: 5 MILLIGRAM
     Route: 065

REACTIONS (1)
  - DEATH [None]
